FAERS Safety Report 25757814 (Version 1)
Quarter: 2025Q3

REPORT INFORMATION
  Report Type: Spontaneous
  Country: GB (occurrence: GB)
  Receive Date: 20250903
  Receipt Date: 20250903
  Transmission Date: 20251020
  Serious: Yes (Other)
  Sender: ORGANON
  Company Number: None

PATIENT
  Age: 33 Year
  Sex: Male
  Weight: 95 kg

DRUGS (1)
  1. MIRTAZAPINE [Suspect]
     Active Substance: MIRTAZAPINE
     Dates: start: 20250830

REACTIONS (2)
  - Muscle spasms [Unknown]
  - Tight hamstring syndrome [Unknown]

NARRATIVE: CASE EVENT DATE: 20250830
